FAERS Safety Report 11103426 (Version 1)
Quarter: 2015Q2

REPORT INFORMATION
  Report Type: Spontaneous
  Country: US (occurrence: None)
  Receive Date: 20150508
  Receipt Date: 20150508
  Transmission Date: 20150821
  Serious: Yes (Death, Hospitalization)
  Sender: FDA-Public Use
  Company Number: None

PATIENT
  Age: 64 Year
  Sex: Female
  Weight: 81.65 kg

DRUGS (10)
  1. UBIQUINOL [Concomitant]
  2. ARMOUR THYROID [Concomitant]
     Active Substance: THYROID, PORCINE\THYROID, UNSPECIFIED
  3. ZYRTEC D ALLERGY AND CONGESTION [Concomitant]
     Active Substance: CETIRIZINE HYDROCHLORIDE\PSEUDOEPHEDRINE HYDROCHLORIDE
  4. HEMP OIL [Concomitant]
     Active Substance: CANNABIS SATIVA SEED OIL
  5. XANAX [Concomitant]
     Active Substance: ALPRAZOLAM
  6. VITAMIN C [Concomitant]
     Active Substance: ASCORBIC ACID
  7. AFINITOR [Suspect]
     Active Substance: EVEROLIMUS
     Indication: HORMONE THERAPY
     Dosage: TAKEN BY MOUTH
     Route: 048
     Dates: start: 20150101, end: 20150123
  8. AFINITOR [Suspect]
     Active Substance: EVEROLIMUS
     Indication: BREAST CANCER METASTATIC
     Dosage: TAKEN BY MOUTH
     Route: 048
     Dates: start: 20150101, end: 20150123
  9. FISH OIL [Concomitant]
     Active Substance: FISH OIL
  10. VITAMIN D [Concomitant]
     Active Substance: CHOLECALCIFEROL

REACTIONS (7)
  - Diverticular perforation [None]
  - Fatigue [None]
  - General physical health deterioration [None]
  - Pain [None]
  - Dysarthria [None]
  - Rectal haemorrhage [None]
  - Large intestine perforation [None]

NARRATIVE: CASE EVENT DATE: 20150131
